FAERS Safety Report 5252764-5 (Version None)
Quarter: 2007Q1

REPORT INFORMATION
  Report Type: 
  Country: None (occurrence: None)
  Receive Date: 20070301
  Receipt Date: 20061211
  Transmission Date: 20070707
  Serious: No
  Sender: FDA-Public Use
  Company Number: US-GLAXOSMITHKLINE-A0629009A

PATIENT
  Age: 20 Year
  Sex: Female

DRUGS (4)
  1. LAMICTAL [Suspect]
     Indication: BIPOLAR DISORDER
     Dosage: 25MG ALTERNATE DAYS
     Route: 048
     Dates: start: 20061107, end: 20061114
  2. KLONOPIN [Concomitant]
  3. SEROQUEL [Concomitant]
  4. ZOLOFT [Concomitant]

REACTIONS (1)
  - RASH [None]
